FAERS Safety Report 4655640-1 (Version None)
Quarter: 2005Q2

REPORT INFORMATION
  Report Type: 
  Country: None (occurrence: None)
  Receive Date: 20050505
  Receipt Date: 20050419
  Transmission Date: 20051028
  Serious: Yes (Other)
  Sender: FDA-Public Use
  Company Number: USA050495977

PATIENT
  Age: 58 Year
  Sex: Male
  Weight: 78 kg

DRUGS (1)
  1. HUMULIN-HUMAN NPH INSULIN (RDNA) (HUMAN INSULIN (RD [Suspect]
     Dosage: 54 U DAY
     Dates: start: 19910101

REACTIONS (3)
  - FEAR OF DISEASE [None]
  - NECK MASS [None]
  - NEOPLASM MALIGNANT [None]
